FAERS Safety Report 9682726 (Version 1)
Quarter: 2013Q4

REPORT INFORMATION
  Report Type: Spontaneous
  Country: IT (occurrence: IT)
  Receive Date: 20131026
  Receipt Date: 20131026
  Transmission Date: 20140711
  Serious: Yes (Other)
  Sender: FDA-Public Use
  Company Number: IT-DRREDDYS-USA/ITL/13/0035219

PATIENT
  Age: 32 Year
  Sex: Female
  Weight: 50 kg

DRUGS (3)
  1. CITALOPRAM [Suspect]
     Indication: DEPRESSION
     Dosage: 1 TABLET IN THE MORNING
     Route: 048
  2. TRAMADOL [Interacting]
     Indication: PRODUCT USED FOR UNKNOWN INDICATION
     Route: 065
  3. DIAZEPAM [Interacting]
     Indication: PRODUCT USED FOR UNKNOWN INDICATION
     Route: 048

REACTIONS (24)
  - Drug abuse [Unknown]
  - Drug dependence [Unknown]
  - Constipation [Recovered/Resolved]
  - Hypoaesthesia [Recovered/Resolved]
  - Euphoric mood [Recovered/Resolved]
  - Nausea [Recovered/Resolved]
  - Urinary retention [Recovered/Resolved]
  - Drug withdrawal syndrome [Recovered/Resolved]
  - Fatigue [Recovered/Resolved]
  - Decreased appetite [Recovered/Resolved]
  - Insomnia [Recovered/Resolved]
  - Tachycardia [Recovered/Resolved]
  - Depression [Not Recovered/Not Resolved]
  - Anxiety [Not Recovered/Not Resolved]
  - Nervousness [Recovered/Resolved]
  - Abdominal pain [Recovered/Resolved]
  - Agitation [Recovered/Resolved]
  - Asthenia [Recovered/Resolved]
  - Headache [Recovered/Resolved]
  - Cold sweat [Recovered/Resolved]
  - Intention tremor [Recovered/Resolved]
  - Flushing [Recovered/Resolved]
  - Weight decreased [Recovered/Resolved]
  - Drug interaction [Unknown]
